FAERS Safety Report 10381038 (Version 1)
Quarter: 2014Q3

REPORT INFORMATION
  Report Type: Spontaneous
  Country: US (occurrence: None)
  Receive Date: 20140808
  Receipt Date: 20140808
  Transmission Date: 20150326
  Serious: Yes (Hospitalization)
  Sender: FDA-Public Use
  Company Number: VAL_03288_2014

PATIENT
  Sex: Male

DRUGS (5)
  1. ERYTHROPOETIN [Concomitant]
     Active Substance: ERYTHROPOIETIN
  2. IRON [Concomitant]
     Active Substance: IRON
  3. VITAMIN D3 [Concomitant]
     Active Substance: CHOLECALCIFEROL
  4. CALCITROL [Suspect]
     Active Substance: CALCITRIOL
     Indication: PRODUCT USED FOR UNKNOWN INDICATION
  5. ENLAPRIL [Concomitant]
     Active Substance: ENALAPRIL

REACTIONS (15)
  - Croup infectious [None]
  - Eosinophil count increased [None]
  - Blood creatinine increased [None]
  - Blood cholesterol increased [None]
  - Cystatin C [None]
  - Monocyte count increased [None]
  - Speech disorder developmental [None]
  - Red blood cell count decreased [None]
  - Blood urea increased [None]
  - Developmental delay [None]
  - Haematocrit decreased [None]
  - Alanine aminotransferase increased [None]
  - Blood glucose increased [None]
  - Blood triglycerides increased [None]
  - Low density lipoprotein increased [None]
